FAERS Safety Report 20011675 (Version 1)
Quarter: 2021Q4

REPORT INFORMATION
  Report Type: Spontaneous
  Country: DE (occurrence: DE)
  Receive Date: 20211029
  Receipt Date: 20211029
  Transmission Date: 20220304
  Serious: Yes (Life-Threatening, Hospitalization, Other)
  Sender: FDA-Public Use
  Company Number: 2021A786173

PATIENT
  Age: 76 Year
  Sex: Female

DRUGS (6)
  1. ROSUVASTATIN [Suspect]
     Active Substance: ROSUVASTATIN
     Dosage: 10.0MG UNKNOWN
     Route: 048
  2. SACUBITRIL\VALSARTAN [Concomitant]
     Active Substance: SACUBITRIL\VALSARTAN
     Dosage: 24/26 MG,
  3. SPIRONOLACTONE [Concomitant]
     Active Substance: SPIRONOLACTONE
  4. CARVEDILOL [Concomitant]
     Active Substance: CARVEDILOL
  5. FUROSEMIDE [Concomitant]
     Active Substance: FUROSEMIDE
  6. ASPIRIN [Concomitant]
     Active Substance: ASPIRIN
     Dosage: 100

REACTIONS (6)
  - Dyskinesia [Unknown]
  - Pneumothorax [Unknown]
  - Cachexia [Unknown]
  - Decreased activity [Unknown]
  - Depressive symptom [Unknown]
  - Hypotension [Unknown]

NARRATIVE: CASE EVENT DATE: 20200401
